FAERS Safety Report 4504359-6 (Version None)
Quarter: 2004Q4

REPORT INFORMATION
  Report Type: 
  Country: None (occurrence: None)
  Receive Date: 20041117
  Receipt Date: 20041117
  Transmission Date: 20050328
  Serious: No
  Sender: FDA-Public Use
  Company Number: None

PATIENT
  Age: 53 Year
  Sex: Female
  Weight: 59.4212 kg

DRUGS (1)
  1. TEMOVATE [Suspect]
     Indication: NEURODERMATITIS
     Dosage: APPLY BID

REACTIONS (4)
  - CONDITION AGGRAVATED [None]
  - DERMATITIS [None]
  - DRUG EFFECT DECREASED [None]
  - PHARMACEUTICAL PRODUCT COMPLAINT [None]
